FAERS Safety Report 8806265 (Version 1)
Quarter: 2012Q4

REPORT INFORMATION
  Report Type: Report from Study
  Country: JP (occurrence: JP)
  Receive Date: 20120925
  Receipt Date: 20120925
  Transmission Date: 20130627
  Serious: Yes (Other)
  Sender: FDA-Public Use
  Company Number: PHHY2010JP83273

PATIENT
  Age: 35 None
  Sex: Female

DRUGS (18)
  1. NEORAL [Suspect]
     Indication: DERMATITIS ATOPIC
     Dosage: 150 mg daily
     Route: 048
     Dates: start: 20081205, end: 20090129
  2. NEORAL [Suspect]
     Dosage: 150 mg daily
     Route: 048
     Dates: start: 20090219, end: 20090507
  3. NEORAL [Suspect]
     Dosage: 150 mg daily
     Route: 048
     Dates: start: 20090626, end: 20090910
  4. NEORAL [Suspect]
     Dosage: 150 mg daily
     Route: 048
     Dates: start: 20091029, end: 20091216
  5. NEORAL [Suspect]
     Dosage: 100 mg daily
     Route: 048
     Dates: start: 20091217, end: 20091223
  6. NEORAL [Suspect]
     Dosage: 150 mg daily
     Route: 048
     Dates: start: 20091224, end: 20100116
  7. ZYRTEC [Concomitant]
     Indication: DERMATITIS ATOPIC
     Dosage: 10 mg
     Route: 048
     Dates: start: 20081205, end: 20090417
  8. TRIQUILAR [Concomitant]
     Route: 048
  9. ALLEGRA [Concomitant]
     Indication: DERMATITIS ATOPIC
     Dosage: 120 mg, UNK
     Route: 048
     Dates: start: 20090417
  10. MYSLEE [Concomitant]
     Indication: DERMATITIS ATOPIC
     Dosage: 5 mg, UNK
     Route: 048
     Dates: start: 20090417
  11. AZEPTIN [Concomitant]
     Indication: DERMATITIS ATOPIC
     Dosage: 1 mg, UNK
     Route: 048
     Dates: start: 20090709
  12. BYAKKO-KA-NINJIN-TO [Concomitant]
     Indication: DERMATITIS ATOPIC
     Dosage: 9 g, UNK
     Route: 048
     Dates: start: 20091022, end: 20091105
  13. DERMOVATE [Concomitant]
     Indication: DERMATITIS ATOPIC
  14. RINDERON-VG [Concomitant]
     Indication: DERMATITIS ATOPIC
     Dates: start: 20090529
  15. HIRUDOID [Concomitant]
     Indication: DERMATITIS ATOPIC
     Dates: start: 20081219
  16. ANTEBATE [Concomitant]
     Indication: DERMATITIS ATOPIC
     Dates: start: 20090327
  17. PROTOPIC [Concomitant]
     Indication: DERMATITIS ATOPIC
     Dates: start: 20090626
  18. CEPHARANTHIN [Concomitant]
     Dosage: 2 mg, UNK
     Route: 048
     Dates: start: 20090608

REACTIONS (4)
  - Alopecia totalis [Recovering/Resolving]
  - Basophil count increased [Unknown]
  - Alopecia [Unknown]
  - Dermatitis atopic [None]
